FAERS Safety Report 5597357-5 (Version None)
Quarter: 2008Q1

REPORT INFORMATION
  Report Type: 
  Country: None (occurrence: None)
  Receive Date: 20080121
  Receipt Date: 20080114
  Transmission Date: 20080703
  Serious: Yes (Hospitalization)
  Sender: FDA-Public Use
  Company Number: ESWYE702630MAY05

PATIENT
  Sex: Male
  Weight: 72.4 kg

DRUGS (13)
  1. RAPAMUNE [Suspect]
     Indication: PROPHYLAXIS AGAINST TRANSPLANT REJECTION
     Route: 048
     Dates: start: 20050425, end: 20050616
  2. PREDNISONE [Concomitant]
     Indication: PROPHYLAXIS AGAINST TRANSPLANT REJECTION
     Dosage: UNKNOWN
     Route: 048
     Dates: end: 20050517
  3. PREDNISONE [Concomitant]
     Route: 048
     Dates: start: 20050518, end: 20050615
  4. PREDNISONE [Concomitant]
     Route: 048
     Dates: start: 20050616, end: 20050629
  5. PREDNISONE [Concomitant]
     Route: 048
     Dates: start: 20050630
  6. SEPTRIN [Concomitant]
     Indication: INFECTION
     Route: 048
     Dates: start: 20050427
  7. SEGURIL [Concomitant]
     Indication: OEDEMA
     Route: 048
     Dates: start: 20050606
  8. INSULIN [Concomitant]
     Indication: DIABETES MELLITUS
     Dosage: AS PER NEEDED
     Route: 058
     Dates: start: 20050426
  9. ARANESP [Concomitant]
     Indication: ANAEMIA
     Dosage: AS PER NEEDED
     Route: 058
     Dates: start: 20050426
  10. ZENEPAX [Concomitant]
     Indication: PROPHYLAXIS AGAINST TRANSPLANT REJECTION
     Dosage: UNKNOWN
  11. PROGRAF [Concomitant]
     Indication: PROPHYLAXIS AGAINST TRANSPLANT REJECTION
     Dosage: UNKNOWN
     Route: 048
     Dates: end: 20050607
  12. PROGRAF [Concomitant]
     Route: 048
     Dates: start: 20050608, end: 20050609
  13. PROGRAF [Concomitant]
     Dosage: DAILY DOSE DEPENDING ON LEVELS
     Route: 048
     Dates: start: 20050610

REACTIONS (4)
  - IMPAIRED HEALING [None]
  - POSTOPERATIVE WOUND INFECTION [None]
  - RENAL IMPAIRMENT [None]
  - VESICAL FISTULA [None]
